FAERS Safety Report 13941717 (Version 1)
Quarter: 2017Q3

REPORT INFORMATION
  Report Type: Spontaneous
  Country: IE (occurrence: IE)
  Receive Date: 20170906
  Receipt Date: 20170906
  Transmission Date: 20171127
  Serious: Yes (Other)
  Sender: FDA-Public Use
  Company Number: IE-MYLANLABS-2017M1054973

PATIENT
  Age: 64 Year
  Sex: Female

DRUGS (3)
  1. ARIPIPRAZOLE. [Concomitant]
     Active Substance: ARIPIPRAZOLE
     Indication: MANIA
     Route: 065
  2. DIAZEPAM. [Concomitant]
     Active Substance: DIAZEPAM
     Indication: MANIA
     Route: 065
  3. LITHIUM. [Suspect]
     Active Substance: LITHIUM
     Indication: MANIA
     Route: 065

REACTIONS (3)
  - Diabetes insipidus [Unknown]
  - Hypernatraemia [Unknown]
  - Toxicity to various agents [Unknown]
